FAERS Safety Report 20078545 (Version 1)
Quarter: 2021Q4

REPORT INFORMATION
  Report Type: Spontaneous
  Country: US (occurrence: US)
  Receive Date: 20211117
  Receipt Date: 20211117
  Transmission Date: 20220303
  Serious: Yes (Other)
  Sender: FDA-Public Use
  Company Number: US-AMGEN-USASP2021177767

PATIENT
  Age: 33 Year
  Sex: Male

DRUGS (3)
  1. CINACALCET HYDROCHLORIDE [Suspect]
     Active Substance: CINACALCET HYDROCHLORIDE
     Indication: Hyperparathyroidism tertiary
     Dosage: 30 MILLIGRAM
     Route: 065
  2. CINACALCET HYDROCHLORIDE [Suspect]
     Active Substance: CINACALCET HYDROCHLORIDE
     Indication: Off label use
  3. ADALIMUMAB [Concomitant]
     Active Substance: ADALIMUMAB
     Indication: Systemic lupus erythematosus

REACTIONS (3)
  - Chronic kidney disease-mineral and bone disorder [Recovering/Resolving]
  - Hungry bone syndrome [Unknown]
  - Off label use [Unknown]
